FAERS Safety Report 4986301-7 (Version None)
Quarter: 2006Q2

REPORT INFORMATION
  Report Type: 
  Country: None (occurrence: None)
  Receive Date: 20060428
  Receipt Date: 20051031
  Transmission Date: 20061013
  Serious: Yes (Hospitalization)
  Sender: FDA-Public Use
  Company Number: US-MERCK-0511USA00345

PATIENT
  Age: 69 Year
  Sex: Female
  Weight: 82 kg

DRUGS (14)
  1. XANAX [Concomitant]
     Route: 065
  2. VIOXX [Suspect]
     Indication: ARTHRITIS
     Route: 048
     Dates: start: 20000101, end: 20040930
  3. VIOXX [Suspect]
     Indication: PAIN
     Route: 048
     Dates: start: 20000101, end: 20040930
  4. VIOXX [Suspect]
     Route: 048
     Dates: start: 20000101, end: 20040930
  5. VIOXX [Suspect]
     Route: 048
     Dates: start: 20000101, end: 20040930
  6. HYZAAR [Concomitant]
     Indication: HYPERTENSION
     Route: 048
  7. ZOCOR [Concomitant]
     Indication: BLOOD CHOLESTEROL INCREASED
     Route: 048
  8. NEXIUM [Concomitant]
     Indication: GASTROOESOPHAGEAL REFLUX DISEASE
     Route: 065
  9. PREVACID [Concomitant]
     Indication: HYPERCHLORHYDRIA
     Route: 065
  10. TOPROL-XL [Concomitant]
     Indication: HYPERTENSION
     Route: 048
  11. VITAMIN D (UNSPECIFIED) [Concomitant]
     Indication: OSTEOPOROSIS
     Route: 065
  12. FOSAMAX [Concomitant]
     Indication: OSTEOPOROSIS
     Route: 065
  13. VYTORIN [Concomitant]
     Indication: BLOOD CHOLESTEROL INCREASED
     Route: 048
  14. HYDROCODONE BITARTRATE [Concomitant]
     Indication: PAIN
     Route: 065

REACTIONS (12)
  - CATARACT [None]
  - CEREBROVASCULAR ACCIDENT [None]
  - COLONIC POLYP [None]
  - CONCUSSION [None]
  - CONTUSION [None]
  - FALL [None]
  - HEAD INJURY [None]
  - JOINT INJURY [None]
  - OESOPHAGEAL DISORDER [None]
  - ROAD TRAFFIC ACCIDENT [None]
  - SYNCOPE [None]
  - TRANSIENT ISCHAEMIC ATTACK [None]
